FAERS Safety Report 4741586-7 (Version None)
Quarter: 2005Q3

REPORT INFORMATION
  Report Type: 
  Country: None (occurrence: None)
  Receive Date: 20050808
  Receipt Date: 20050727
  Transmission Date: 20060218
  Serious: Yes (Life-Threatening, Hospitalization)
  Sender: FDA-Public Use
  Company Number: GBS050718034

PATIENT
  Age: 56 Year
  Sex: Female

DRUGS (5)
  1. OLANZAPINE [Suspect]
     Indication: BIPOLAR I DISORDER
     Dosage: 5 MG
     Dates: start: 20050701
  2. METFORMIN [Concomitant]
  3. CARBAMAZEPINE [Concomitant]
  4. GLICLAZIDE [Concomitant]
  5. DILTIAZEM [Concomitant]

REACTIONS (1)
  - SUPRAVENTRICULAR TACHYCARDIA [None]
